FAERS Safety Report 8575771-3 (Version None)
Quarter: 2012Q3

REPORT INFORMATION
  Report Type: 
  Country: None (occurrence: None)
  Receive Date: 20120807
  Receipt Date: 20120727
  Transmission Date: 20120928
  Serious: Yes (Hospitalization)
  Sender: FDA-Public Use
  Company Number: US-BAYER-2012-076266

PATIENT
  Age: 26 Year
  Sex: Female
  Weight: 83.9 kg

DRUGS (7)
  1. YAZ [Suspect]
  2. ALBUTEROL [Concomitant]
     Dosage: UNK
  3. ZOFRAN [Concomitant]
     Indication: NAUSEA
     Dosage: 4 MG Q 8 H PRN
  4. WELLBUTRIN [Concomitant]
     Dosage: 100 MG, DAILY
  5. DROSPIRENONE AND ETHINYL ESTRADIOL [Suspect]
  6. NORCO [Concomitant]
     Indication: HEADACHE
     Dosage: 5 MG TO 10 MG EVERY  6 H AS NEEDED
  7. KLONOPIN [Concomitant]
     Dosage: 1 MG, UNK

REACTIONS (1)
  - TRANSIENT ISCHAEMIC ATTACK [None]
